FAERS Safety Report 5469345-0 (Version None)
Quarter: 2007Q3

REPORT INFORMATION
  Report Type: 
  Country: None (occurrence: None)
  Receive Date: 20070927
  Receipt Date: 20070919
  Transmission Date: 20080115
  Serious: Yes (Hospitalization, Other)
  Sender: FDA-Public Use
  Company Number: CA-JNJFOC-20070806543

PATIENT
  Sex: Female
  Weight: 48.54 kg

DRUGS (10)
  1. REMICADE [Suspect]
     Route: 042
  2. REMICADE [Suspect]
     Dosage: WEEK-6
     Route: 042
  3. REMICADE [Suspect]
     Dosage: WEEK-2
     Route: 042
  4. REMICADE [Suspect]
     Indication: CROHN'S DISEASE
     Dosage: WEEK-0
     Route: 042
  5. DILAUDID [Concomitant]
     Indication: PROCTALGIA
     Route: 048
  6. PURINETHOL [Concomitant]
     Route: 048
  7. PAXIL [Concomitant]
     Route: 048
  8. FLAGYL [Concomitant]
     Route: 048
  9. NAPROXEN [Concomitant]
     Dosage: BID
     Route: 048
  10. PANTOPRAZOLE SODIUM [Concomitant]
     Route: 048

REACTIONS (1)
  - GASTROINTESTINAL CARCINOMA [None]
